FAERS Safety Report 14479921 (Version 1)
Quarter: 2018Q1

REPORT INFORMATION
  Report Type: Spontaneous
  Country: US (occurrence: US)
  Receive Date: 20180201
  Receipt Date: 20180201
  Transmission Date: 20180509
  Serious: Yes (Hospitalization)
  Sender: FDA-Public Use
  Company Number: None

PATIENT
  Age: 60 Year
  Sex: Female

DRUGS (4)
  1. DOXORUBICIN [Concomitant]
     Active Substance: DOXORUBICIN
  2. VINCRISTINE [Concomitant]
     Active Substance: VINCRISTINE
  3. CYCLOPHOSPHAMIDE. [Concomitant]
     Active Substance: CYCLOPHOSPHAMIDE
  4. ERTAPENEM. [Suspect]
     Active Substance: ERTAPENEM SODIUM

REACTIONS (3)
  - Diarrhoea [None]
  - Anaemia [None]
  - Clostridium test positive [None]
